FAERS Safety Report 5097058-6 (Version None)
Quarter: 2006Q3

REPORT INFORMATION
  Report Type: 
  Country: None (occurrence: None)
  Receive Date: 20060901
  Receipt Date: 20060814
  Transmission Date: 20061208
  Serious: Yes (Hospitalization)
  Sender: FDA-Public Use
  Company Number: US200606000110

PATIENT
  Sex: Male
  Weight: 113.4 kg

DRUGS (5)
  1. ZYPREXA [Suspect]
     Dosage: 10 MG; 7.5 MG; 2.5 MG; 2.5 MG; 10 MG
     Dates: start: 20050105, end: 20050606
  2. ZYPREXA [Suspect]
     Dosage: 10 MG; 7.5 MG; 2.5 MG; 2.5 MG; 10 MG
     Dates: start: 20050705, end: 20050921
  3. ZYPREXA [Suspect]
     Dosage: 10 MG; 7.5 MG; 2.5 MG; 2.5 MG; 10 MG
     Dates: start: 20050101
  4. ZYPREXA [Suspect]
     Dosage: 10 MG; 7.5 MG; 2.5 MG; 2.5 MG; 10 MG
     Dates: start: 20050101
  5. ZYPREXA [Suspect]
     Dosage: 10 MG; 7.5 MG; 2.5 MG; 2.5 MG; 10 MG
     Dates: start: 20050609

REACTIONS (9)
  - DIABETES MELLITUS [None]
  - DIABETIC KETOACIDOSIS [None]
  - HAEMATEMESIS [None]
  - KETONURIA [None]
  - METABOLIC ACIDOSIS [None]
  - OBESITY [None]
  - OVERDOSE [None]
  - POLYDIPSIA [None]
  - VISION BLURRED [None]
